FAERS Safety Report 13424086 (Version 1)
Quarter: 2017Q2

REPORT INFORMATION
  Report Type: Spontaneous
  Country: US (occurrence: US)
  Receive Date: 20170410
  Receipt Date: 20170410
  Transmission Date: 20170830
  Serious: No
  Sender: FDA-Public Use
  Company Number: US-MALLINCKRODT-T201700279

PATIENT
  Sex: Female
  Weight: 54 kg

DRUGS (3)
  1. METHADONE [Suspect]
     Active Substance: METHADONE HYDROCHLORIDE
     Indication: PAIN
     Dosage: 20 MG QID PLUS 10 MG PRN, OR 30 MG TID
     Route: 048
     Dates: start: 2008, end: 2016
  2. VITAMIN D [Concomitant]
     Active Substance: CHOLECALCIFEROL
     Dosage: 50,000 IU, QD
     Route: 048
  3. METHADONE [Suspect]
     Active Substance: METHADONE HYDROCHLORIDE
     Dosage: 20 MG, BID
     Route: 048
     Dates: start: 2016

REACTIONS (3)
  - Vitamin D decreased [Unknown]
  - Drug screen positive [Unknown]
  - Gastric ulcer [Recovering/Resolving]

NARRATIVE: CASE EVENT DATE: 2011
